FAERS Safety Report 15401246 (Version 1)
Quarter: 2018Q3

REPORT INFORMATION
  Report Type: Spontaneous
  Country: US (occurrence: US)
  Receive Date: 20180919
  Receipt Date: 20180919
  Transmission Date: 20181010
  Serious: No
  Sender: FDA-Public Use
  Company Number: US-APOTEX-2018AP019004

PATIENT

DRUGS (1)
  1. FLUTICASONE PROPIONATE. [Suspect]
     Active Substance: FLUTICASONE PROPIONATE
     Indication: PRODUCT USED FOR UNKNOWN INDICATION
     Dosage: UNK
     Route: 065

REACTIONS (5)
  - Nasal congestion [Recovering/Resolving]
  - Epistaxis [Recovering/Resolving]
  - Blister [Recovering/Resolving]
  - Rhinalgia [Recovering/Resolving]
  - Hypersensitivity [Recovering/Resolving]
